FAERS Safety Report 6462659-7 (Version None)
Quarter: 2009Q4

REPORT INFORMATION
  Report Type: 
  Country: None (occurrence: None)
  Receive Date: 20091130
  Receipt Date: 20091116
  Transmission Date: 20100525
  Serious: Yes (Other)
  Sender: FDA-Public Use
  Company Number: US-SANOFI-AVENTIS-2009SA003882

PATIENT
  Age: 53 Year
  Sex: Male
  Weight: 181 kg

DRUGS (5)
  1. MULTAQ [Suspect]
     Indication: ATRIAL FIBRILLATION
     Route: 048
     Dates: start: 20090909
  2. METOPROLOL [Concomitant]
  3. COUMADIN [Concomitant]
  4. GLUCOVANCE [Concomitant]
  5. PRINIVIL [Concomitant]

REACTIONS (1)
  - ATRIAL FIBRILLATION [None]
